FAERS Safety Report 9609255 (Version 2)
Quarter: 2013Q4

REPORT INFORMATION
  Report Type: Spontaneous
  Country: US (occurrence: US)
  Receive Date: 20131009
  Receipt Date: 20131009
  Transmission Date: 20140711
  Serious: Yes (Other)
  Sender: FDA-Public Use
  Company Number: US-NAPPMUNDI-USA-2012-0094554

PATIENT
  Age: 55 Year
  Sex: 0
  Weight: 103.86 kg

DRUGS (1)
  1. BUTRANS [Suspect]
     Indication: BACK PAIN
     Dosage: 10 MCG, WEEKLY
     Route: 062
     Dates: start: 20111014, end: 20121009

REACTIONS (6)
  - Application site dermatitis [Recovered/Resolved]
  - Application site erythema [Recovered/Resolved]
  - Application site oedema [Recovered/Resolved]
  - Application site discolouration [Not Recovered/Not Resolved]
  - Application site urticaria [Recovered/Resolved]
  - Application site pruritus [Not Recovered/Not Resolved]
